FAERS Safety Report 24386294 (Version 1)
Quarter: 2024Q4

REPORT INFORMATION
  Report Type: Report from Study
  Country: CA (occurrence: CA)
  Receive Date: 20241001
  Receipt Date: 20241001
  Transmission Date: 20250115
  Serious: Yes (Hospitalization)
  Sender: ABBVIE
  Company Number: CA-ABBVIE-5939078

PATIENT
  Age: 70 Year
  Sex: Female

DRUGS (2)
  1. RISANKIZUMAB [Suspect]
     Active Substance: RISANKIZUMAB
     Indication: Product used for unknown indication
     Route: 058
     Dates: end: 20240923
  2. RINVOQ [Suspect]
     Active Substance: UPADACITINIB
     Indication: Psoriatic arthropathy
     Route: 048
     Dates: start: 20240815

REACTIONS (2)
  - Pharyngeal disorder [Unknown]
  - Wheelchair user [Unknown]

NARRATIVE: CASE EVENT DATE: 20240101
